FAERS Safety Report 6780310-3 (Version None)
Quarter: 2010Q2

REPORT INFORMATION
  Report Type: 
  Country: None (occurrence: None)
  Receive Date: 20100618
  Receipt Date: 20100608
  Transmission Date: 20101027
  Serious: Yes (Hospitalization, Other)
  Sender: FDA-Public Use
  Company Number: JP-ABBOTT-10P-087-0647014-00

PATIENT
  Sex: Male
  Weight: 101 kg

DRUGS (14)
  1. HUMIRA [Suspect]
     Indication: PSORIASIS
     Route: 058
     Dates: start: 20100415, end: 20100415
  2. HUMIRA [Suspect]
     Route: 058
     Dates: start: 20100430, end: 20100513
  3. LOXOPROFEN SODIUM HYDRATE [Suspect]
     Indication: BACK PAIN
     Dosage: 60 MILIIGRAMS DAILY
     Route: 048
     Dates: start: 20040121, end: 20100522
  4. LOXOPROFEN SODIUM HYDRATE [Suspect]
  5. ALLOPURINOL [Suspect]
     Indication: HYPERURICAEMIA
     Dosage: 200 MILLIGRAMS DAILY
     Route: 048
     Dates: start: 20040511, end: 20100522
  6. ETRETINATE [Concomitant]
     Indication: PSORIASIS
     Route: 048
     Dates: start: 20090612
  7. REBAMIPIDE [Concomitant]
     Indication: GASTRITIS
     Route: 048
     Dates: start: 20080212, end: 20100522
  8. BROTIZOLAM [Concomitant]
     Indication: INSOMNIA
     Route: 048
     Dates: start: 20090205
  9. NIFEDIPINE [Concomitant]
     Indication: HYPERTENSION
     Route: 048
     Dates: start: 20081001
  10. ANTIBIOTICS-RESISTANT LACTIC ACID BACTERIAE [Concomitant]
     Indication: DIARRHOEA
     Route: 048
     Dates: start: 20100526
  11. LOXOPROFEN SODIUM HYDRATE [Concomitant]
     Indication: DRUG USE FOR UNKNOWN INDICATION
     Dates: start: 20040121, end: 20100522
  12. ALLOPURINOL [Concomitant]
     Dates: start: 20040511, end: 20100522
  13. CETIRIZINE HYDROCHLORIDE [Concomitant]
     Indication: PSORIASIS
     Route: 048
     Dates: start: 20100523
  14. CETIRIZINE HYDROCHLORIDE [Concomitant]
     Indication: PRURITUS

REACTIONS (8)
  - BACK PAIN [None]
  - C-REACTIVE PROTEIN INCREASED [None]
  - DECREASED APPETITE [None]
  - DEHYDRATION [None]
  - DIARRHOEA [None]
  - PSORIASIS [None]
  - PYREXIA [None]
  - RENAL IMPAIRMENT [None]
